FAERS Safety Report 22880605 (Version 3)
Quarter: 2023Q4

REPORT INFORMATION
  Report Type: Report from Study
  Country: US (occurrence: US)
  Receive Date: 20230829
  Receipt Date: 20231212
  Transmission Date: 20240110
  Serious: Yes (Other)
  Sender: FDA-Public Use
  Company Number: US-ABBVIE-5384920

PATIENT
  Age: 59 Year
  Sex: Female
  Weight: 61.235 kg

DRUGS (2)
  1. RINVOQ [Suspect]
     Active Substance: UPADACITINIB
     Indication: Rheumatoid arthritis
     Dosage: 15MG PILL
     Route: 048
     Dates: start: 202305, end: 20230814
  2. RINVOQ [Suspect]
     Active Substance: UPADACITINIB
     Indication: Rheumatoid arthritis
     Dosage: 15MG PILL
     Route: 048
     Dates: start: 20230829, end: 20230910

REACTIONS (2)
  - Flap surgery [Recovered/Resolved]
  - Flap surgery [Recovering/Resolving]

NARRATIVE: CASE EVENT DATE: 20230814
